FAERS Safety Report 6316504-0 (Version None)
Quarter: 2009Q3

REPORT INFORMATION
  Report Type: 
  Country: None (occurrence: None)
  Receive Date: 20090820
  Receipt Date: 20090812
  Transmission Date: 20100115
  Serious: Yes (Other)
  Sender: FDA-Public Use
  Company Number: CA-JNJFOC-20090804895

PATIENT
  Age: 51 Year
  Sex: Female

DRUGS (1)
  1. MONISTAT DERM CREAM [Suspect]
     Indication: FUNGAL INFECTION
     Route: 061

REACTIONS (3)
  - COUGH [None]
  - VULVOVAGINAL BURNING SENSATION [None]
  - WHEEZING [None]
